FAERS Safety Report 8551112-2 (Version None)
Quarter: 2012Q3

REPORT INFORMATION
  Report Type: 
  Country: None (occurrence: None)
  Receive Date: 20120730
  Receipt Date: 20110914
  Transmission Date: 20120928
  Serious: No
  Sender: FDA-Public Use
  Company Number: US-ALLERGAN-1111110US

PATIENT
  Age: 66 Year
  Sex: Female

DRUGS (2)
  1. PROPYLENE GLYCOL [Concomitant]
     Indication: DRY EYE
     Dosage: UNK
     Route: 047
  2. LUMIGAN [Suspect]
     Indication: GROWTH OF EYELASHES
     Dosage: UNK
     Route: 061
     Dates: start: 20110601, end: 20110701

REACTIONS (2)
  - WRONG TECHNIQUE IN DRUG USAGE PROCESS [None]
  - SKIN HYPERPIGMENTATION [None]
